FAERS Safety Report 8818679 (Version 1)
Quarter: 2012Q4

REPORT INFORMATION
  Report Type: 
  Country: CN (occurrence: CN)
  Receive Date: 20121001
  Receipt Date: 20121001
  Transmission Date: 20130627
  Serious: Yes (Other)
  Sender: FDA-Public Use
  Company Number: PHHY2012CN083126

PATIENT

DRUGS (5)
  1. CICLOSPORIN [Suspect]
     Indication: GRAFT VERSUS HOST DISEASE
     Dosage: 3 mg/kg, UNK
  2. METHOTREXATE [Concomitant]
  3. MYCOPHENOLATE MOFETIL [Concomitant]
  4. HEPARIN [Concomitant]
  5. PROSTAGLANDIN E1 [Concomitant]

REACTIONS (1)
  - Epilepsy [Unknown]
